FAERS Safety Report 17245478 (Version 1)
Quarter: 2020Q1

REPORT INFORMATION
  Report Type: Spontaneous
  Country: US (occurrence: US)
  Receive Date: 20200108
  Receipt Date: 20200108
  Transmission Date: 20200409
  Serious: Yes (Other)
  Sender: FDA-Public Use
  Company Number: US-GLAXOSMITHKLINE-US2020AMR002936

PATIENT
  Sex: Female

DRUGS (1)
  1. BENLYSTA [Suspect]
     Active Substance: BELIMUMAB
     Indication: SYSTEMIC LUPUS ERYTHEMATOSUS
     Dosage: 1 ML, WE
     Route: 065
     Dates: start: 20181016

REACTIONS (6)
  - Swelling [Unknown]
  - Tooth extraction [Unknown]
  - Tooth infection [Unknown]
  - Sinusitis [Unknown]
  - Eye infection [Unknown]
  - Cellulitis [Unknown]
